FAERS Safety Report 5156991-7 (Version None)
Quarter: 2006Q4

REPORT INFORMATION
  Report Type: 
  Country: None (occurrence: None)
  Receive Date: 20061127
  Receipt Date: 20061116
  Transmission Date: 20070319
  Serious: Yes (Hospitalization, Other)
  Sender: FDA-Public Use
  Company Number: JP-JNJFOC-20060102704

PATIENT
  Sex: Female
  Weight: 50 kg

DRUGS (9)
  1. REMICADE [Suspect]
     Indication: RHEUMATOID ARTHRITIS
     Route: 042
  2. RHEUMATREX [Concomitant]
     Route: 048
  3. RHEUMATREX [Concomitant]
     Route: 048
  4. RHEUMATREX [Concomitant]
     Indication: RHEUMATOID ARTHRITIS
     Route: 048
  5. ADRENAL HORMONE PREPARATIONS [Concomitant]
     Indication: RHEUMATOID ARTHRITIS
  6. PREDONINE [Concomitant]
     Indication: RHEUMATOID ARTHRITIS
     Route: 048
  7. ALFAROL [Concomitant]
     Dosage: DOSE ^1RG^
     Route: 048
  8. GASTER D [Concomitant]
     Route: 048
  9. DEPAS [Concomitant]
     Route: 048

REACTIONS (2)
  - BLOOD PRESSURE INCREASED [None]
  - GASTRIC CANCER [None]
